FAERS Safety Report 5041561-1 (Version None)
Quarter: 2006Q2

REPORT INFORMATION
  Report Type: 
  Country: None (occurrence: None)
  Receive Date: 20060627
  Receipt Date: 20060615
  Transmission Date: 20061013
  Serious: Yes (Hospitalization)
  Sender: FDA-Public Use
  Company Number: 2006075945

PATIENT
  Age: 69 Year
  Sex: Male
  Weight: 80.72 kg

DRUGS (4)
  1. ATORVASTATIN CALCIUM [Suspect]
     Indication: HYPERCHOLESTEROLAEMIA
     Dosage: 40 MG (1 IN 1 D)
     Dates: start: 20060406
  2. SERTRALINE [Concomitant]
  3. ASPIRIN [Concomitant]
  4. COMBIVENT [Concomitant]

REACTIONS (9)
  - AORTIC VALVE INCOMPETENCE [None]
  - BLOOD CREATINE PHOSPHOKINASE INCREASED [None]
  - ELECTROCARDIOGRAM ST-T CHANGE [None]
  - LUNG HYPERINFLATION [None]
  - MITRAL VALVE INCOMPETENCE [None]
  - PALPITATIONS [None]
  - PLEURAL EFFUSION [None]
  - TRICUSPID VALVE INCOMPETENCE [None]
  - TROPONIN I INCREASED [None]
